FAERS Safety Report 8478620-7 (Version None)
Quarter: 2012Q2

REPORT INFORMATION
  Report Type: 
  Country: None (occurrence: None)
  Receive Date: 20120629
  Receipt Date: 20120627
  Transmission Date: 20120825
  Serious: Yes (Other)
  Sender: FDA-Public Use
  Company Number: US-PFIZER INC-2012155216

PATIENT
  Sex: Female
  Weight: 83 kg

DRUGS (4)
  1. PREMARIN [Suspect]
     Indication: VULVOVAGINAL DRYNESS
     Dosage: UNK
     Route: 048
     Dates: start: 20120301
  2. PREMARIN [Suspect]
     Dosage: UNK
     Route: 067
     Dates: start: 20120301
  3. PREMARIN [Suspect]
     Indication: HORMONE REPLACEMENT THERAPY
     Dosage: 0.625 MG, 1X/DAY
     Route: 048
     Dates: start: 19990101, end: 19990101
  4. PREMARIN [Suspect]
     Dosage: UNK
     Route: 067
     Dates: start: 19990101, end: 19990101

REACTIONS (7)
  - DIABETES MELLITUS [None]
  - BLOOD CHOLESTEROL ABNORMAL [None]
  - VITAMIN B12 DECREASED [None]
  - VITAMIN D DECREASED [None]
  - FEMALE STERILISATION [None]
  - HYPERTENSION [None]
  - APPENDIX DISORDER [None]
